FAERS Safety Report 17584386 (Version 3)
Quarter: 2022Q4

REPORT INFORMATION
  Report Type: Spontaneous
  Country: US (occurrence: US)
  Receive Date: 20200326
  Receipt Date: 20221011
  Transmission Date: 20230113
  Serious: No
  Sender: FDA-Public Use
  Company Number: US-PFIZER INC-2020123309

PATIENT
  Age: 30 Year
  Sex: Female
  Weight: 125 kg

DRUGS (22)
  1. DOCETAXEL [Suspect]
     Active Substance: DOCETAXEL
     Indication: Breast cancer female
     Dosage: 150 MG, CYCLIC (AT VARIED FREQUENCIES FOR 8 CYCLES)
     Dates: start: 20150629, end: 20150727
  2. DOCETAXEL [Suspect]
     Active Substance: DOCETAXEL
     Indication: Head and neck cancer
     Dosage: UNK
     Dates: start: 20180430, end: 20180820
  3. DOCETAXEL [Suspect]
     Active Substance: DOCETAXEL
     Indication: Breast cancer female
     Dosage: 150 MG, CYCLIC (AT VARIED FREQUENCIES FOR 8 CYCLES)
     Dates: start: 20150629, end: 20150727
  4. DOCETAXEL [Suspect]
     Active Substance: DOCETAXEL
     Indication: Head and neck cancer
  5. TAXOTERE [Suspect]
     Active Substance: DOCETAXEL
     Dosage: UNK
     Dates: start: 20150629, end: 20150727
  6. TAXOTERE [Suspect]
     Active Substance: DOCETAXEL
     Dosage: 1 MG, UNK
     Dates: start: 20180430, end: 20180820
  7. PLATINOL [Concomitant]
     Active Substance: CISPLATIN
     Indication: Chemotherapy
     Dosage: UNK
     Dates: start: 20150629, end: 20150727
  8. FLUOROURACIL [Concomitant]
     Active Substance: FLUOROURACIL
     Indication: Chemotherapy
     Dosage: UNK
     Dates: start: 20150629, end: 20150727
  9. MANNITOL [Concomitant]
     Active Substance: MANNITOL
     Indication: Chemotherapy
     Dosage: UNK
     Dates: start: 20150629, end: 20150727
  10. SODIUM CHLORIDE [Concomitant]
     Active Substance: SODIUM CHLORIDE
     Indication: Chemotherapy
     Dosage: UNK
     Dates: start: 20150629, end: 20150727
  11. ONDANSETRON [Concomitant]
     Active Substance: ONDANSETRON
     Indication: Chemotherapy
     Dosage: UNK
     Dates: start: 20150629, end: 20150727
  12. DEXAMETHASONE [Concomitant]
     Active Substance: DEXAMETHASONE
     Indication: Chemotherapy
     Dosage: UNK
     Dates: start: 20150629, end: 20150727
  13. PERJETA [Concomitant]
     Active Substance: PERTUZUMAB
     Indication: Chemotherapy
     Dosage: 1 MG, UNK
     Dates: start: 20180430, end: 20180820
  14. DECADRON [Concomitant]
     Active Substance: DEXAMETHASONE
     Indication: Chemotherapy
     Dosage: 1 MG, UNK
     Dates: start: 20180430, end: 20180820
  15. BENADRYL [Concomitant]
     Active Substance: DIPHENHYDRAMINE HYDROCHLORIDE
     Indication: Chemotherapy
     Dosage: 50 MG, UNK
     Dates: start: 20180430, end: 20180820
  16. SUSTOL [Concomitant]
     Active Substance: GRANISETRON
     Indication: Chemotherapy
     Dosage: 0.1 MG, UNK
     Dates: start: 20180430, end: 20180820
  17. NEULASTA [Concomitant]
     Active Substance: PEGFILGRASTIM
     Indication: Chemotherapy
     Dosage: 6 MG, UNK
     Dates: start: 20180430, end: 20180820
  18. PARAPLATIN [Concomitant]
     Active Substance: CARBOPLATIN
     Indication: Chemotherapy
     Dosage: 50 MG, UNK
     Dates: start: 20180430, end: 20180820
  19. HERCEPTIN [Concomitant]
     Active Substance: TRASTUZUMAB
     Indication: Chemotherapy
     Dosage: 10 MG, UNK
     Dates: start: 20180430, end: 20180820
  20. ALLOPURINOL [Concomitant]
     Active Substance: ALLOPURINOL
     Dosage: UNK
     Dates: start: 201712
  21. DULOXETINE [Concomitant]
     Active Substance: DULOXETINE
     Dosage: UNK
     Dates: start: 201712
  22. OMEPRAZOLE [Concomitant]
     Active Substance: OMEPRAZOLE
     Dosage: UNK
     Dates: start: 201406

REACTIONS (5)
  - Alopecia [Not Recovered/Not Resolved]
  - Hair disorder [Not Recovered/Not Resolved]
  - Hair colour changes [Not Recovered/Not Resolved]
  - Hair texture abnormal [Not Recovered/Not Resolved]
  - Madarosis [Not Recovered/Not Resolved]

NARRATIVE: CASE EVENT DATE: 20151201
